FAERS Safety Report 20318237 (Version 1)
Quarter: 2022Q1

REPORT INFORMATION
  Report Type: Spontaneous
  Country: US (occurrence: US)
  Receive Date: 20220110
  Receipt Date: 20220110
  Transmission Date: 20220423
  Serious: No
  Sender: FDA-Public Use
  Company Number: US-SA-SAC20220107000543

PATIENT
  Age: 46 Year
  Sex: Male

DRUGS (3)
  1. DUPIXENT [Suspect]
     Active Substance: DUPILUMAB
     Dosage: 300 MG, QOW
     Route: 058
  2. XANAX [Concomitant]
     Active Substance: ALPRAZOLAM
     Indication: Insomnia
  3. TYLENOL [Concomitant]
     Active Substance: ACETAMINOPHEN
     Indication: Joint stiffness

REACTIONS (3)
  - Joint stiffness [Unknown]
  - Pain [Unknown]
  - Insomnia [Unknown]
